FAERS Safety Report 13306323 (Version 3)
Quarter: 2017Q2

REPORT INFORMATION
  Report Type: Spontaneous
  Country: US (occurrence: US)
  Receive Date: 20170308
  Receipt Date: 20170509
  Transmission Date: 20170830
  Serious: No
  Sender: FDA-Public Use
  Company Number: US-PFIZER INC-2017094960

PATIENT
  Age: 12 Year
  Sex: Male

DRUGS (2)
  1. GENOTROPIN [Suspect]
     Active Substance: SOMATROPIN
     Indication: SMALL FOR DATES BABY
     Dosage: UNK, 1X/DAY (2.4)
  2. GENOTROPIN [Suspect]
     Active Substance: SOMATROPIN
     Indication: FOETAL MALNUTRITION
     Dosage: 2.2 MG, DAILY
     Route: 058
     Dates: start: 201212

REACTIONS (1)
  - Drug ineffective [Unknown]
